FAERS Safety Report 14763303 (Version 2)
Quarter: 2018Q2

REPORT INFORMATION
  Report Type: Report from Study
  Country: HU (occurrence: HU)
  Receive Date: 20180416
  Receipt Date: 20180522
  Transmission Date: 20180711
  Serious: Yes (Hospitalization, Other)
  Sender: FDA-Public Use
  Company Number: PHHY2018HU064237

PATIENT
  Age: 61 Year
  Sex: Male
  Weight: 78 kg

DRUGS (4)
  1. MEKINIST [Suspect]
     Active Substance: TRAMETINIB DIMETHYL SULFOXIDE
     Indication: MALIGNANT MELANOMA
     Dosage: 2 MG, QD (1 X/DAY)
     Route: 048
     Dates: start: 20170608, end: 20180112
  2. FOTEMUSTINE [Suspect]
     Active Substance: FOTEMUSTINE
     Dosage: UNK
     Route: 065
     Dates: start: 20180202
  3. FOTEMUSTINE [Suspect]
     Active Substance: FOTEMUSTINE
     Indication: PRODUCT USED FOR UNKNOWN INDICATION
     Dosage: UNK
     Route: 065
     Dates: start: 20180126
  4. TAFINLAR [Suspect]
     Active Substance: DABRAFENIB MESYLATE
     Indication: MALIGNANT MELANOMA
     Dosage: 75 MG, BID (2X/DAY)
     Route: 048
     Dates: start: 20170601, end: 20180112

REACTIONS (14)
  - Chest wall tumour [Unknown]
  - Lymphadenopathy [Unknown]
  - Skin mass [Unknown]
  - Panic attack [Recovering/Resolving]
  - Panniculitis [Unknown]
  - Malignant melanoma [Not Recovered/Not Resolved]
  - Folliculitis [Unknown]
  - Malignant neoplasm progression [Not Recovered/Not Resolved]
  - Dizziness [Unknown]
  - Hyperkeratosis [Unknown]
  - Metastases to bone [Unknown]
  - Metastases to central nervous system [Unknown]
  - Muscular weakness [Unknown]
  - Erythema [Unknown]

NARRATIVE: CASE EVENT DATE: 20180110
